FAERS Safety Report 4747197-1 (Version None)
Quarter: 2005Q3

REPORT INFORMATION
  Report Type: 
  Country: None (occurrence: None)
  Receive Date: 20050815
  Receipt Date: 20050222
  Transmission Date: 20060218
  Serious: Yes (Hospitalization)
  Sender: FDA-Public Use
  Company Number: MEDI-0002968

PATIENT
  Age: 2 Month
  Weight: 6.58 kg

DRUGS (1)
  1. SYNAGIS [Suspect]
     Indication: ANTIVIRAL PROPHYLAXIS
     Dosage: 0.945 ML, 1 IN 30 D, INTRAMUSCULAR
     Route: 030
     Dates: start: 20050111, end: 20050111

REACTIONS (3)
  - RALES [None]
  - RESPIRATORY SYNCYTIAL VIRUS INFECTION [None]
  - RHONCHI [None]
